FAERS Safety Report 7118394-5 (Version None)
Quarter: 2010Q4

REPORT INFORMATION
  Report Type: 
  Country: None (occurrence: None)
  Receive Date: 20101020
  Receipt Date: 20090312
  Transmission Date: 20110411
  Serious: Yes (Hospitalization)
  Sender: FDA-Public Use
  Company Number: WAES 0903USA02105

PATIENT
  Age: 73 Year
  Sex: Female

DRUGS (7)
  1. JANUVIA [Suspect]
     Indication: DIABETES MELLITUS
     Dosage: 25 MG/DAILY/PO
     Route: 048
     Dates: start: 20090303, end: 20090312
  2. ACTOS [Concomitant]
  3. ARICEPT [Concomitant]
  4. DIOVAN HCT [Concomitant]
  5. GLUCOVANCE [Concomitant]
  6. LIPITOR [Concomitant]
  7. NORVASC [Concomitant]

REACTIONS (1)
  - PANCREATITIS [None]
